FAERS Safety Report 8357695-X (Version None)
Quarter: 2012Q2

REPORT INFORMATION
  Report Type: 
  Country: None (occurrence: None)
  Receive Date: 20120514
  Receipt Date: 20120507
  Transmission Date: 20120825
  Serious: Yes (Hospitalization, Other)
  Sender: FDA-Public Use
  Company Number: US-MERCK-1101USA01419

PATIENT
  Age: 85 Year
  Sex: Male
  Weight: 79 kg

DRUGS (6)
  1. HYDROCODONE [Concomitant]
     Indication: PAIN
     Route: 065
     Dates: start: 20000413, end: 20100929
  2. LISINOPRIL [Concomitant]
     Indication: HYPERTENSION
     Route: 065
     Dates: start: 20060223, end: 20080525
  3. VYTORIN [Concomitant]
     Route: 048
     Dates: start: 20060223, end: 20071114
  4. ATENOLOL [Concomitant]
     Indication: HYPERTENSION
     Route: 048
     Dates: start: 19940110, end: 20070914
  5. FOSAMAX PLUS D [Suspect]
     Indication: OSTEOPOROSIS
     Route: 048
     Dates: start: 20070720, end: 20090128
  6. ATIVAN [Concomitant]
     Indication: ANXIETY
     Route: 048
     Dates: start: 19941018, end: 20080422

REACTIONS (45)
  - ATELECTASIS [None]
  - CHRONIC OBSTRUCTIVE PULMONARY DISEASE [None]
  - ORAL CAVITY FISTULA [None]
  - CARPAL TUNNEL SYNDROME [None]
  - BRADYCARDIA [None]
  - LACERATION [None]
  - PNEUMONIA [None]
  - INSOMNIA [None]
  - ABSCESS [None]
  - EUSTACHIAN TUBE DYSFUNCTION [None]
  - MIXED DEAFNESS [None]
  - MUSCULAR WEAKNESS [None]
  - DEAFNESS NEUROSENSORY [None]
  - GLUCOSE TOLERANCE IMPAIRED [None]
  - ADVERSE DRUG REACTION [None]
  - FALL [None]
  - SEROMA [None]
  - RENAL DISORDER [None]
  - TYMPANIC MEMBRANE SCARRING [None]
  - ORAL DISORDER [None]
  - MEMORY IMPAIRMENT [None]
  - ASTHENIA [None]
  - MENINGIOMA [None]
  - TOOTH DISORDER [None]
  - IMPAIRED HEALING [None]
  - ATRIAL FIBRILLATION [None]
  - TYMPANIC MEMBRANE PERFORATION [None]
  - TOOTH ABSCESS [None]
  - ORAL INFECTION [None]
  - HYPERKALAEMIA [None]
  - HEAD INJURY [None]
  - DEPRESSION [None]
  - ANAEMIA [None]
  - ANXIETY [None]
  - BLOOD GLUCOSE INCREASED [None]
  - CERVICAL CORD COMPRESSION [None]
  - GAIT DISTURBANCE [None]
  - DIZZINESS [None]
  - PANIC ATTACK [None]
  - OSTEONECROSIS OF JAW [None]
  - HYPOKALAEMIA [None]
  - OSTEOMYELITIS [None]
  - CARDIOMEGALY [None]
  - TYMPANIC MEMBRANE DISORDER [None]
  - TOOTH LOSS [None]
